FAERS Safety Report 16175104 (Version 1)
Quarter: 2019Q2

REPORT INFORMATION
  Report Type: Spontaneous
  Country: GB (occurrence: GB)
  Receive Date: 20190409
  Receipt Date: 20190409
  Transmission Date: 20190711
  Serious: Yes (Other)
  Sender: FDA-Public Use
  Company Number: GB-PFIZER INC-2019146487

PATIENT
  Age: 64 Year
  Sex: Female
  Weight: 61 kg

DRUGS (8)
  1. BETMIGA [Concomitant]
     Active Substance: MIRABEGRON
     Dosage: UNK
  2. DIHYDROCODEINE [Concomitant]
     Active Substance: DIHYDROCODEINE
     Dosage: UNK
  3. COCODAMOL [Concomitant]
     Active Substance: ACETAMINOPHEN\CODEINE PHOSPHATE
  4. ATORVASTATIN [Concomitant]
     Active Substance: ATORVASTATIN
  5. GAVISCON [ALGELDRATE;ALGINIC ACID;MAGNESIUM TRISILICATE;SODIUM BICARBO [Concomitant]
     Dosage: UNK
  6. CLINDAMYCIN HCL [Suspect]
     Active Substance: CLINDAMYCIN HYDROCHLORIDE
     Indication: INFECTED SEROMA
     Dosage: 600 MG, DAILY
     Route: 048
     Dates: start: 20190305, end: 20190308
  7. IBUPROFEN. [Concomitant]
     Active Substance: IBUPROFEN
     Dosage: UNK
  8. PARACETAMOL [Concomitant]
     Active Substance: ACETAMINOPHEN
     Dosage: UNK

REACTIONS (4)
  - Dysphagia [Unknown]
  - Dysphonia [Recovered/Resolved]
  - Pain [Unknown]
  - Oesophageal pain [Recovered/Resolved]

NARRATIVE: CASE EVENT DATE: 20190305
